FAERS Safety Report 5979353-9 (Version None)
Quarter: 2008Q4

REPORT INFORMATION
  Report Type: 
  Country: None (occurrence: None)
  Receive Date: 20081204
  Receipt Date: 20081127
  Transmission Date: 20090506
  Serious: Yes (Hospitalization)
  Sender: FDA-Public Use
  Company Number: DE-ABBOTT-08P-062-0489992-00

PATIENT
  Sex: Female

DRUGS (7)
  1. HUMIRA [Suspect]
     Indication: DRUG USE FOR UNKNOWN INDICATION
     Route: 058
     Dates: start: 20080407, end: 20080801
  2. HUMIRA [Suspect]
     Dates: end: 20081020
  3. LEFLUNOMIDE [Concomitant]
     Indication: DRUG USE FOR UNKNOWN INDICATION
  4. METOPROLOL SUCCINATE [Concomitant]
     Indication: DRUG USE FOR UNKNOWN INDICATION
  5. PREDNISOLONE [Concomitant]
     Indication: DRUG USE FOR UNKNOWN INDICATION
  6. HERPHONAL [Concomitant]
     Indication: DRUG USE FOR UNKNOWN INDICATION
  7. AMETRILIN [Concomitant]
     Indication: DRUG USE FOR UNKNOWN INDICATION

REACTIONS (6)
  - BILIARY COLIC [None]
  - CHOLELITHIASIS [None]
  - CHOLESTASIS [None]
  - HEPATITIS [None]
  - HERPES ZOSTER [None]
  - PANCREATITIS [None]
